FAERS Safety Report 10100873 (Version 2)
Quarter: 2014Q2

REPORT INFORMATION
  Report Type: Spontaneous
  Country: ES (occurrence: ES)
  Receive Date: 20140423
  Receipt Date: 20140423
  Transmission Date: 20141212
  Serious: Yes (Hospitalization, Other)
  Sender: FDA-Public Use
  Company Number: ES-RB-066342-14

PATIENT
  Sex: Male

DRUGS (1)
  1. SUBOXONE UNSPECIFIED [Suspect]
     Indication: DRUG DEPENDENCE
     Dosage: DOSING DETAILS UNKNOWN
     Route: 060

REACTIONS (3)
  - Back pain [Unknown]
  - Pneumonia [Not Recovered/Not Resolved]
  - Arthritis bacterial [Not Recovered/Not Resolved]
